FAERS Safety Report 5122843-1 (Version None)
Quarter: 2006Q4

REPORT INFORMATION
  Report Type: 
  Country: None (occurrence: None)
  Receive Date: 20061009
  Receipt Date: 20051122
  Transmission Date: 20070319
  Serious: Yes (Hospitalization, Other)
  Sender: FDA-Public Use
  Company Number: DE-BAYER-200511088BVD

PATIENT
  Age: 64 Year
  Sex: Female
  Weight: 92 kg

DRUGS (9)
  1. PACLITAXEL [Suspect]
     Indication: MALIGNANT MELANOMA
     Route: 042
     Dates: start: 20051019, end: 20051019
  2. CARBOPLATIN [Suspect]
     Indication: MALIGNANT MELANOMA
     Route: 042
     Dates: start: 20051019, end: 20051019
  3. SORAFENIB [Suspect]
     Indication: MALIGNANT MELANOMA
     Dosage: TOTAL DAILY DOSE: 800 MG
     Route: 048
     Dates: start: 20051020, end: 20051026
  4. SORAFENIB [Suspect]
     Dosage: TOTAL DAILY DOSE: 800 MG  UNIT DOSE: 400 MG
     Route: 048
     Dates: start: 20051102, end: 20051106
  5. ATACAND [Concomitant]
     Indication: HYPERTENSION
     Route: 065
     Dates: start: 20000101
  6. METOPROLOL TARTRATE [Concomitant]
     Dosage: TOTAL DAILY DOSE: 100 MG
     Route: 065
     Dates: start: 20000101
  7. ALLOPURINOL [Concomitant]
     Indication: HYPERURICAEMIA
     Route: 065
     Dates: start: 20000101
  8. CIPROBAY [Concomitant]
     Indication: URINARY TRACT INFECTION
     Dosage: AS USED: 250 MG
     Route: 065
     Dates: start: 20051020, end: 20051023
  9. HYDROXYUREA [Concomitant]
     Indication: MALIGNANT MELANOMA
     Route: 048
     Dates: start: 20051109, end: 20051113

REACTIONS (12)
  - ANAEMIA [None]
  - FATIGUE [None]
  - GENERAL PHYSICAL CONDITION ABNORMAL [None]
  - LEUKOPENIA [None]
  - MALIGNANT NEOPLASM PROGRESSION [None]
  - METASTASES TO BONE [None]
  - METASTASES TO LIVER [None]
  - METASTASES TO LUNG [None]
  - METASTASES TO PERITONEUM [None]
  - SKIN TOXICITY [None]
  - THROMBOCYTOPENIA [None]
  - THROMBOSIS [None]
